FAERS Safety Report 9642100 (Version 1)
Quarter: 2013Q4

REPORT INFORMATION
  Report Type: Spontaneous
  Country: US (occurrence: US)
  Receive Date: 20131023
  Receipt Date: 20131023
  Transmission Date: 20140711
  Serious: Yes (Hospitalization, Other)
  Sender: FDA-Public Use
  Company Number: US-RB-059796-13

PATIENT
  Age: 28 Year
  Sex: Female

DRUGS (2)
  1. BUPRENORPHINE/NALOXONE UNSPECIFIED [Suspect]
     Indication: DRUG DEPENDENCE
     Dosage: DOSING DETAILS UNKNOWN
     Route: 060
     Dates: end: 201310
  2. BUPRENORPHINE/NALOXONE GENERIC [Suspect]
     Indication: DRUG DEPENDENCE
     Dosage: THE DOSING VARIED AND INVOLVED CUTTING THE TABLET TO ACCOMPLISH A 1 MG DOSE
     Route: 060
     Dates: start: 20131013

REACTIONS (3)
  - Eating disorder [Recovering/Resolving]
  - Condition aggravated [Recovering/Resolving]
  - Wrong technique in drug usage process [Unknown]
